FAERS Safety Report 7451518-9 (Version None)
Quarter: 2011Q2

REPORT INFORMATION
  Report Type: 
  Country: None (occurrence: None)
  Receive Date: 20110502
  Receipt Date: 20110419
  Transmission Date: 20111010
  Serious: No
  Sender: FDA-Public Use
  Company Number: JP-JNJFOC-20110205439

PATIENT
  Age: 39 Year
  Sex: Female

DRUGS (1)
  1. DUROTEP [Suspect]
     Indication: CANCER PAIN
     Route: 062

REACTIONS (3)
  - NAUSEA [None]
  - VOMITING [None]
  - DRUG PRESCRIBING ERROR [None]
